FAERS Safety Report 17614857 (Version 3)
Quarter: 2020Q2

REPORT INFORMATION
  Report Type: Report from Study
  Country: BR (occurrence: BR)
  Receive Date: 20200402
  Receipt Date: 20200514
  Transmission Date: 20200713
  Serious: Yes (Death, Life-Threatening, Hospitalization, Other)
  Sender: FDA-Public Use
  Company Number: NVSC2020BR090343

PATIENT
  Age: 26 Year
  Sex: Female

DRUGS (2)
  1. LOSARTAN POTASSIUM. [Suspect]
     Active Substance: LOSARTAN POTASSIUM
     Indication: HYPERTENSION
     Dosage: UNK
     Route: 065
  2. GILENYA [Suspect]
     Active Substance: FINGOLIMOD HYDROCHLORIDE
     Indication: MULTIPLE SCLEROSIS
     Dosage: UNK
     Route: 048
     Dates: start: 20190416

REACTIONS (14)
  - Loss of consciousness [Unknown]
  - Cerebrovascular accident [Fatal]
  - Vein rupture [Unknown]
  - Asthenia [Not Recovered/Not Resolved]
  - Brain oedema [Fatal]
  - Brain death [Unknown]
  - Hypertension [Not Recovered/Not Resolved]
  - Drug ineffective [Unknown]
  - Coma [Unknown]
  - Emotional distress [Unknown]
  - Blood pressure fluctuation [Not Recovered/Not Resolved]
  - Malaise [Unknown]
  - Immunodeficiency [Unknown]
  - Vein disorder [Unknown]

NARRATIVE: CASE EVENT DATE: 20200226
